FAERS Safety Report 8701497 (Version 2)
Quarter: 2012Q4

REPORT INFORMATION
  Report Type: 
  Country: US (occurrence: US)
  Receive Date: 20120802
  Receipt Date: 20120904
  Transmission Date: 20130627
  Serious: Yes (Other)
  Sender: FDA-Public Use
  Company Number: CHPA2012US015649

PATIENT
  Sex: Female

DRUGS (1)
  1. BENEFIBER UNKNOWN [Suspect]
     Dosage: Unk, Unk
     Route: 065

REACTIONS (1)
  - Drug dependence [Unknown]
